FAERS Safety Report 9192515 (Version 1)
Quarter: 2013Q1

REPORT INFORMATION
  Report Type: Spontaneous
  Country: DK (occurrence: None)
  Receive Date: 20130318
  Receipt Date: 20130318
  Transmission Date: 20140127
  Serious: Yes (Hospitalization, Disabling, Other)
  Sender: FDA-Public Use
  Company Number: 2013035017

PATIENT
  Age: 57 Year
  Sex: Male

DRUGS (1)
  1. ZEMAIRA [Suspect]
     Indication: ALPHA-1 ANTI-TRYPSIN DEFICIENCY
     Dosage: 20-MAR-2012  12:25  TO  NI,  *?INTRAVENOUS  (NOT OTHERWISE  *  SPECIFIED)?20-MAR-2012  12?
     Route: 042
     Dates: start: 20120320

REACTIONS (2)
  - Deep vein thrombosis [None]
  - Haemoglobin increased [None]
